FAERS Safety Report 13857297 (Version 4)
Quarter: 2018Q1

REPORT INFORMATION
  Report Type: Report from Study
  Country: US (occurrence: US)
  Receive Date: 20170810
  Receipt Date: 20180125
  Transmission Date: 20180508
  Serious: No
  Sender: FDA-Public Use
  Company Number: US-AMGEN-USASL2017102723

PATIENT
  Age: 85 Year
  Sex: Female
  Weight: 77.98 kg

DRUGS (9)
  1. PRALUENT [Suspect]
     Active Substance: ALIROCUMAB
     Indication: DYSLIPIDAEMIA
     Dosage: UNK UNK, Q2WK
     Route: 058
     Dates: start: 20170214, end: 20170415
  2. VALSARTAN. [Concomitant]
     Active Substance: VALSARTAN
     Indication: HYPERTENSION
     Dosage: 160 MG, BID
  3. PRALUENT [Suspect]
     Active Substance: ALIROCUMAB
     Indication: BRADYCARDIA
  4. METOPROLOL. [Suspect]
     Active Substance: METOPROLOL
     Indication: CORONARY ARTERY DISEASE
     Dosage: 20 MG, BID
     Route: 065
     Dates: start: 201704, end: 201704
  5. METOPROLOL. [Suspect]
     Active Substance: METOPROLOL
     Indication: BRADYCARDIA
  6. FISH OIL [Concomitant]
     Active Substance: FISH OIL
     Indication: DYSLIPIDAEMIA
     Dosage: 100 MG, BID
  7. PRALUENT [Suspect]
     Active Substance: ALIROCUMAB
     Indication: CORONARY ARTERY DISEASE
     Dosage: UNK
     Route: 058
  8. HCTZ [Concomitant]
     Active Substance: HYDROCHLOROTHIAZIDE
     Indication: HYPERTENSION
     Dosage: 12.5 MG, QD
  9. REPATHA [Suspect]
     Active Substance: EVOLOCUMAB
     Indication: HYPERCHOLESTEROLAEMIA
     Dosage: 140 MG, Q2WK
     Route: 065
     Dates: start: 201701

REACTIONS (6)
  - Asthenia [Unknown]
  - Back pain [Unknown]
  - Bronchitis [Recovered/Resolved]
  - Gait disturbance [Recovered/Resolved]
  - Joint range of motion decreased [Recovered/Resolved]
  - Dehydration [Unknown]

NARRATIVE: CASE EVENT DATE: 20170407
